FAERS Safety Report 10083485 (Version 1)
Quarter: 2014Q2

REPORT INFORMATION
  Report Type: Spontaneous
  Country: US (occurrence: US)
  Receive Date: 20140417
  Receipt Date: 20140417
  Transmission Date: 20141212
  Serious: Yes (Hospitalization, Other)
  Sender: FDA-Public Use
  Company Number: US-TEVA-475446USA

PATIENT
  Age: 61 Year
  Sex: Male

DRUGS (3)
  1. METRONIDAZOLE [Suspect]
     Route: 048
     Dates: start: 20140409, end: 20140409
  2. DIPHENOXYLATE AND ATROPINE SULFATE [Suspect]
     Indication: DIARRHOEA
     Route: 048
     Dates: start: 20140409, end: 20140409
  3. LISINOPRIL/HCTZ [Concomitant]
     Indication: HYPERTENSION
     Dosage: 10/12.5MG
     Route: 048

REACTIONS (2)
  - Lip swelling [Recovering/Resolving]
  - Diarrhoea [Unknown]
